FAERS Safety Report 7072190-6 (Version None)
Quarter: 2010Q4

REPORT INFORMATION
  Report Type: 
  Country: None (occurrence: None)
  Receive Date: 20101029
  Receipt Date: 20091215
  Transmission Date: 20110411
  Serious: No
  Sender: FDA-Public Use
  Company Number: A0835191A

PATIENT
  Sex: Male

DRUGS (4)
  1. ADVAIR DISKUS 100/50 [Suspect]
     Indication: CHRONIC OBSTRUCTIVE PULMONARY DISEASE
     Dosage: 1PUFF TWICE PER DAY
     Route: 055
     Dates: start: 20060101, end: 20090101
  2. FLOVENT [Suspect]
     Indication: ASTHMA
     Dosage: 2PUFF TWICE PER DAY
     Route: 055
     Dates: start: 20091201, end: 20091215
  3. VENTOLIN [Suspect]
     Indication: ASTHMA
     Dosage: 2PUFF AS REQUIRED
     Route: 055
     Dates: start: 20091201
  4. IPRATROPIUM BROMIDE + SALBUTAMOL SULPHATE [Concomitant]
     Route: 055

REACTIONS (8)
  - COUGH [None]
  - DECREASED APPETITE [None]
  - DISSOCIATION [None]
  - DYSPNOEA [None]
  - EYE IRRITATION [None]
  - OCULAR HYPERAEMIA [None]
  - PERSONALITY CHANGE [None]
  - PRODUCTIVE COUGH [None]
